FAERS Safety Report 16825251 (Version 2)
Quarter: 2019Q4

REPORT INFORMATION
  Report Type: Spontaneous
  Country: GR (occurrence: GR)
  Receive Date: 20190919
  Receipt Date: 20191010
  Transmission Date: 20200122
  Serious: Yes (Other)
  Sender: FDA-Public Use
  Company Number: GR-AMGEN-GRCSP2019151721

PATIENT
  Age: 44 Year
  Sex: Male

DRUGS (14)
  1. VITAMIN D3 [Concomitant]
     Active Substance: CHOLECALCIFEROL
     Dosage: 2000 INTERNATIONAL UNIT
  2. MAGNESIUM [Concomitant]
     Active Substance: MAGNESIUM
     Indication: HUNGRY BONE SYNDROME
  3. VITAMIN D3 [Concomitant]
     Active Substance: CHOLECALCIFEROL
     Dosage: 1600 INTERNATIONAL UNIT
  4. CALCIUM CARBONATE. [Concomitant]
     Active Substance: CALCIUM CARBONATE
     Indication: HUNGRY BONE SYNDROME
     Dosage: 4 GRAM, QD
     Route: 065
  5. CINACALCET HCL [Suspect]
     Active Substance: CINACALCET HYDROCHLORIDE
     Indication: HYPERPARATHYROIDISM PRIMARY
     Dosage: 30 MILLIGRAM, BID
     Route: 065
  6. VITAMIN D3 [Concomitant]
     Active Substance: CHOLECALCIFEROL
     Dosage: 4000 INTERNATIONAL UNIT
  7. MAGNESIUM [Concomitant]
     Active Substance: MAGNESIUM
     Indication: BLOOD MAGNESIUM ABNORMAL
  8. CALCIUM CARBONATE/VITAMIN D3 [Concomitant]
     Active Substance: CALCIUM CARBONATE\CHOLECALCIFEROL
     Indication: BLOOD PARATHYROID HORMONE INCREASED
     Dosage: 1000MG/880 IU, BID
     Route: 065
  9. ALENDRONATE [Concomitant]
     Active Substance: ALENDRONATE SODIUM
     Indication: BONE DENSITY ABNORMAL
     Dosage: 70 MILLIGRAM, QWK
     Route: 065
  10. CINACALCET HCL [Suspect]
     Active Substance: CINACALCET HYDROCHLORIDE
     Dosage: 60 MILLIGRAM, TID
     Route: 065
  11. MAGNESIUM [Concomitant]
     Active Substance: MAGNESIUM
     Indication: HYPERCALCAEMIA
     Dosage: 243 MILLIGRAM
     Route: 065
  12. VITAMIN D3 [Concomitant]
     Active Substance: CHOLECALCIFEROL
     Indication: HUNGRY BONE SYNDROME
     Dosage: 2000 INTERNATIONAL UNIT
     Route: 065
  13. ALFACALCIDOL [Concomitant]
     Active Substance: ALFACALCIDOL
     Indication: HUNGRY BONE SYNDROME
     Dosage: 1 MICROGRAM
     Route: 065
  14. CALCIUM CARBONATE. [Concomitant]
     Active Substance: CALCIUM CARBONATE
     Dosage: 2 GRAM

REACTIONS (7)
  - Blood phosphorus decreased [Unknown]
  - Blood parathyroid hormone increased [Unknown]
  - Blood 25-hydroxycholecalciferol decreased [Unknown]
  - Hypocalcaemia [Unknown]
  - Drug ineffective [Unknown]
  - Blood magnesium decreased [Unknown]
  - Hungry bone syndrome [Unknown]
